FAERS Safety Report 6695472-6 (Version None)
Quarter: 2010Q2

REPORT INFORMATION
  Report Type: 
  Country: None (occurrence: None)
  Receive Date: 20100422
  Receipt Date: 20100422
  Transmission Date: 20101027
  Serious: Yes (Hospitalization)
  Sender: FDA-Public Use
  Company Number: None

PATIENT
  Sex: Female
  Weight: 66.8 kg

DRUGS (3)
  1. METHOTREXATE [Suspect]
     Dosage: 6000 MG
  2. VINCRISTINE SULFATE [Suspect]
     Dosage: 2.4 MG
  3. LEUCOVORIN CALCIUM [Suspect]
     Dosage: 350 MG

REACTIONS (1)
  - PULMONARY EMBOLISM [None]
